FAERS Safety Report 8585084-1 (Version None)
Quarter: 2012Q3

REPORT INFORMATION
  Report Type: 
  Country: None (occurrence: None)
  Receive Date: 20120810
  Receipt Date: 20120803
  Transmission Date: 20120928
  Serious: Yes (Hospitalization)
  Sender: FDA-Public Use
  Company Number: ES-BRISTOL-MYERS SQUIBB COMPANY-16728131

PATIENT
  Age: 59 Year
  Sex: Female

DRUGS (4)
  1. ENANTYUM [Concomitant]
     Dosage: 22JUN12-26-JUN12, 29JUN12-UNK
     Dates: start: 20120622
  2. MORPHINE [Concomitant]
     Dates: start: 20120626, end: 20120629
  3. IPILIMUMAB [Suspect]
     Indication: METASTATIC MALIGNANT MELANOMA
     Dosage: COURSES:2 PREV-11JUN12, 14JUN12
     Route: 042
     Dates: start: 20120523
  4. METAMIZOLE [Concomitant]
     Dates: start: 20120629

REACTIONS (3)
  - PAIN [None]
  - HAEMORRHAGIC ASCITES [None]
  - VOMITING [None]
